FAERS Safety Report 14260307 (Version 1)
Quarter: 2017Q4

REPORT INFORMATION
  Report Type: Report from Study
  Country: IT (occurrence: IT)
  Receive Date: 20171207
  Receipt Date: 20171207
  Transmission Date: 20180321
  Serious: Yes (Death, Other)
  Sender: FDA-Public Use
  Company Number: IT-GILEAD-2017-0306873

PATIENT
  Age: 78 Year
  Sex: Female

DRUGS (3)
  1. IDELALISIB [Suspect]
     Active Substance: IDELALISIB
     Indication: CHRONIC LYMPHOCYTIC LEUKAEMIA
     Dosage: 100 MG, BID, 4TH THERAPY LINE
     Route: 065
     Dates: start: 20160408
  2. IDELALISIB [Suspect]
     Active Substance: IDELALISIB
     Dosage: 100 MG, BID
     Route: 065
     Dates: end: 20160715
  3. RITUXIMAB. [Suspect]
     Active Substance: RITUXIMAB
     Indication: CHRONIC LYMPHOCYTIC LEUKAEMIA
     Dosage: UNK
     Route: 065
     Dates: start: 20160408

REACTIONS (5)
  - Bacterial diarrhoea [Recovered/Resolved]
  - Chronic obstructive pulmonary disease [Unknown]
  - Cardiac failure [Fatal]
  - Treatment noncompliance [Unknown]
  - Lung infection [Fatal]
